FAERS Safety Report 5143025-3 (Version None)
Quarter: 2006Q4

REPORT INFORMATION
  Report Type: 
  Country: None (occurrence: None)
  Receive Date: 20061103
  Receipt Date: 20060302
  Transmission Date: 20070319
  Serious: Yes (Hospitalization)
  Sender: FDA-Public Use
  Company Number: US-ELI_LILLY_AND_COMPANY-US200603002346

PATIENT
  Age: 41 Year
  Sex: Male
  Weight: 137 kg

DRUGS (2)
  1. FLUOXETINE                              /N/A/ [Concomitant]
     Dates: start: 20050201, end: 20051101
  2. ZYPREXA [Suspect]
     Dosage: 20 MG, 4/D
     Dates: start: 20020101, end: 20051201

REACTIONS (5)
  - HAEMORRHAGE [None]
  - OBESITY [None]
  - PANCREATITIS [None]
  - PRESCRIBED OVERDOSE [None]
  - PSYCHOTIC DISORDER [None]
